FAERS Safety Report 5368504-5 (Version None)
Quarter: 2007Q2

REPORT INFORMATION
  Report Type: 
  Country: None (occurrence: None)
  Receive Date: 20070625
  Receipt Date: 20070622
  Transmission Date: 20071010
  Serious: Yes (Hospitalization)
  Sender: FDA-Public Use
  Company Number: FR-BAYER-200710072BFR

PATIENT
  Age: 79 Year
  Sex: Male
  Weight: 88 kg

DRUGS (10)
  1. CIFLOX [Suspect]
     Indication: URINARY TRACT INFECTION
     Route: 048
     Dates: start: 20061117, end: 20061118
  2. XANAX [Concomitant]
     Indication: UNEVALUABLE EVENT
     Route: 065
  3. ATHYMIL [Concomitant]
     Indication: UNEVALUABLE EVENT
     Route: 065
  4. ZOLPIDEM [Concomitant]
     Indication: UNEVALUABLE EVENT
     Route: 065
  5. FENOFIBRATE [Concomitant]
     Indication: UNEVALUABLE EVENT
     Route: 065
  6. PLAVIX [Concomitant]
     Indication: UNEVALUABLE EVENT
     Route: 065
  7. SPECIAFOLDINE [Concomitant]
     Indication: UNEVALUABLE EVENT
     Route: 065
  8. NOOTROPYL [Concomitant]
     Indication: UNEVALUABLE EVENT
     Route: 065
  9. VASTAREL [Concomitant]
     Indication: UNEVALUABLE EVENT
     Route: 065
  10. PERMIXON [Concomitant]
     Indication: UNEVALUABLE EVENT
     Route: 065

REACTIONS (2)
  - DERMATITIS BULLOUS [None]
  - THROMBOCYTOPENIC PURPURA [None]
